FAERS Safety Report 6216038-8 (Version None)
Quarter: 2009Q2

REPORT INFORMATION
  Report Type: 
  Country: None (occurrence: None)
  Receive Date: 20090605
  Receipt Date: 20090528
  Transmission Date: 20091009
  Serious: Yes (Other)
  Sender: FDA-Public Use
  Company Number: PHHY2008CA20356

PATIENT
  Sex: Female
  Weight: 77.098 kg

DRUGS (2)
  1. SANDOSTATIN LAR [Suspect]
     Indication: ACROMEGALY
     Dosage: 20 MG EVERY 4 WEEKS
     Route: 030
     Dates: start: 20080729
  2. ZOLOFT [Concomitant]

REACTIONS (8)
  - CRYING [None]
  - DEPRESSION [None]
  - FALL [None]
  - HYPERHIDROSIS [None]
  - INSOMNIA [None]
  - MOOD SWINGS [None]
  - NAUSEA [None]
  - STRESS [None]
